FAERS Safety Report 4961851-8 (Version None)
Quarter: 2006Q1

REPORT INFORMATION
  Report Type: 
  Country: None (occurrence: None)
  Receive Date: 20060329
  Receipt Date: 20060320
  Transmission Date: 20060701
  Serious: Yes (Other)
  Sender: FDA-Public Use
  Company Number: 2006038611

PATIENT
  Sex: Female
  Weight: 2.7216 kg

DRUGS (1)
  1. SUDAFED PE SINUS HEADACHE CAPLET (ACETAMINOPHEN, PHENYLEPHRINE HYDROCH [Suspect]
     Indication: DRUG EXPOSURE DURING PREGNANCY
     Dosage: 2 CAPLETS ONCE DAILY, AS NEEDED, PLACENTAL
     Dates: start: 20050801, end: 20060313

REACTIONS (4)
  - DRUG EXPOSURE DURING PREGNANCY [None]
  - FOETAL DISTRESS SYNDROME [None]
  - TACHYCARDIA FOETAL [None]
  - UMBILICAL CORD AROUND NECK [None]
